FAERS Safety Report 8054194-X (Version None)
Quarter: 2012Q1

REPORT INFORMATION
  Report Type: 
  Country: None (occurrence: None)
  Receive Date: 20120118
  Receipt Date: 20120113
  Transmission Date: 20120608
  Serious: Yes (Hospitalization)
  Sender: FDA-Public Use
  Company Number: BR-ABBOTT-11P-020-0712431-00

PATIENT
  Sex: Female
  Weight: 65 kg

DRUGS (4)
  1. HUMIRA [Suspect]
     Indication: RHEUMATOID ARTHRITIS
     Route: 058
     Dates: start: 20080101, end: 20100101
  2. HUMIRA [Suspect]
  3. ACECLOFENAC [Concomitant]
     Indication: RHEUMATOID ARTHRITIS
     Dosage: 1 OR 2 A DAY
     Route: 048
  4. CORTISONE ACETATE [Concomitant]
     Indication: RHEUMATOID ARTHRITIS
     Route: 048

REACTIONS (5)
  - VOMITING [None]
  - PNEUMONIA [None]
  - PYREXIA [None]
  - GASTROOESOPHAGEAL REFLUX DISEASE [None]
  - COUGH [None]
